FAERS Safety Report 17755767 (Version 2)
Quarter: 2020Q2

REPORT INFORMATION
  Report Type: Spontaneous
  Country: US (occurrence: US)
  Receive Date: 20200507
  Receipt Date: 20200528
  Transmission Date: 20200714
  Serious: No
  Sender: FDA-Public Use
  Company Number: US-SA-2018SA293329

PATIENT
  Age: 61 Year
  Sex: Female

DRUGS (2)
  1. TOUJEO MAX [Suspect]
     Active Substance: INSULIN GLARGINE
     Dosage: 100 IU, QD (EVERY AM)
     Route: 065
  2. TOUJEO MAX [Suspect]
     Active Substance: INSULIN GLARGINE
     Indication: TYPE 2 DIABETES MELLITUS
     Dosage: 90 IU, QD
     Route: 065
     Dates: start: 20180802

REACTIONS (6)
  - Injection site bruising [Unknown]
  - Wrong device used [Unknown]
  - Weight increased [Unknown]
  - Therapeutic response decreased [Unknown]
  - Injection site pain [Unknown]
  - Blood glucose increased [Unknown]
